FAERS Safety Report 9414351 (Version 1)
Quarter: 2013Q3

REPORT INFORMATION
  Report Type: Spontaneous
  Country: US (occurrence: US)
  Receive Date: 20130723
  Receipt Date: 20130723
  Transmission Date: 20140515
  Serious: Yes (Congenital Anomaly)
  Sender: FDA-Public Use
  Company Number: US-ASTELLAS-2011US006845

PATIENT
  Sex: Female

DRUGS (2)
  1. PROTOPIC [Suspect]
     Indication: SKIN DISORDER
     Dosage: UNK
     Route: 061
     Dates: start: 200403, end: 200412
  2. PROTOPIC [Suspect]
     Dosage: UNK
     Route: 061
     Dates: start: 2005, end: 2006

REACTIONS (3)
  - Skull malformation [Unknown]
  - Exposure during pregnancy [Unknown]
  - Exposure during breast feeding [Unknown]
